FAERS Safety Report 7587568-1 (Version None)
Quarter: 2011Q3

REPORT INFORMATION
  Report Type: 
  Country: None (occurrence: None)
  Receive Date: 20110704
  Receipt Date: 20110620
  Transmission Date: 20111222
  Serious: Yes (Death, Hospitalization, Other)
  Sender: FDA-Public Use
  Company Number: PHHY2011CA54947

PATIENT
  Age: 50 Year
  Sex: Female

DRUGS (4)
  1. LETROZOLE [Suspect]
     Indication: BREAST CANCER
  2. EXEMESTANE [Suspect]
  3. PAMIDRONATE DISODIUM [Suspect]
     Indication: METASTASES TO BONE
  4. CAPECITABINE [Suspect]

REACTIONS (7)
  - METASTASES TO MENINGES [None]
  - INAPPROPRIATE ANTIDIURETIC HORMONE SECRETION [None]
  - METASTASES TO SKIN [None]
  - METASTASES TO BONE [None]
  - LARGE INTESTINAL OBSTRUCTION [None]
  - GASTROINTESTINAL TRACT ADENOMA [None]
  - METASTASES TO LYMPH NODES [None]
